FAERS Safety Report 8246343-5 (Version None)
Quarter: 2012Q1

REPORT INFORMATION
  Report Type: 
  Country: None (occurrence: None)
  Receive Date: 20120329
  Receipt Date: 20120329
  Transmission Date: 20120608
  Serious: No
  Sender: FDA-Public Use
  Company Number: None

PATIENT
  Sex: Male

DRUGS (2)
  1. RISPERIDONE [Suspect]
     Indication: MAJOR DEPRESSION
     Dosage: 1MG PO QHS
     Route: 048
     Dates: start: 20120213, end: 20120217
  2. RISPERIDONE [Suspect]
     Indication: PSYCHOTIC DISORDER
     Dosage: 1MG PO QHS
     Route: 048
     Dates: start: 20120213, end: 20120217

REACTIONS (3)
  - DRUG INEFFECTIVE [None]
  - PRURITUS [None]
  - PRODUCT SUBSTITUTION ISSUE [None]
